FAERS Safety Report 12207742 (Version 1)
Quarter: 2016Q1

REPORT INFORMATION
  Report Type: Report from Study
  Country: DE (occurrence: DE)
  Receive Date: 20160324
  Receipt Date: 20160324
  Transmission Date: 20160526
  Serious: Yes (Hospitalization)
  Sender: FDA-Public Use
  Company Number: DE-B.I. PHARMACEUTICALS,INC./RIDGEFIELD-2015-BI-58477DE

PATIENT
  Age: 78 Year
  Sex: Male

DRUGS (8)
  1. BELOK-ZOK FORTE [Concomitant]
     Indication: PRODUCT USED FOR UNKNOWN INDICATION
     Dosage: 1 ANZ
     Route: 065
  2. OFEV [Suspect]
     Active Substance: NINTEDANIB
     Indication: IDIOPATHIC PULMONARY FIBROSIS
     Dosage: 300 MG
     Route: 048
     Dates: start: 20150921
  3. JANUVIA [Concomitant]
     Active Substance: SITAGLIPTIN PHOSPHATE
     Indication: PRODUCT USED FOR UNKNOWN INDICATION
     Dosage: 1 ANZ
     Route: 065
  4. LANTUS SOLOSTAR [Concomitant]
     Active Substance: INSULIN GLARGINE
     Indication: PRODUCT USED FOR UNKNOWN INDICATION
     Dosage: 10 U
     Route: 065
  5. GLUCOBA [Concomitant]
     Indication: PRODUCT USED FOR UNKNOWN INDICATION
     Dosage: 3 NG
     Route: 065
  6. MILGAMMA PROTEKT [Concomitant]
     Indication: PRODUCT USED FOR UNKNOWN INDICATION
     Dosage: 1 ANZ
     Route: 065
  7. SAGE. [Concomitant]
     Active Substance: SAGE
     Indication: PRODUCT USED FOR UNKNOWN INDICATION
     Route: 065
  8. ZINKOROTAT [Concomitant]
     Indication: PRODUCT USED FOR UNKNOWN INDICATION
     Dosage: 1 ANZ
     Route: 065

REACTIONS (9)
  - Dyspnoea [Unknown]
  - Weight decreased [Unknown]
  - Fatigue [Not Recovered/Not Resolved]
  - Frequent bowel movements [Unknown]
  - Oedema peripheral [Unknown]
  - Dyspnoea [Not Recovered/Not Resolved]
  - Angina pectoris [Unknown]
  - Cough [Not Recovered/Not Resolved]
  - Cardiac disorder [Unknown]

NARRATIVE: CASE EVENT DATE: 20150930
